FAERS Safety Report 25536864 (Version 1)
Quarter: 2025Q3

REPORT INFORMATION
  Report Type: Report from Study
  Country: EU (occurrence: EU)
  Receive Date: 20250710
  Receipt Date: 20250710
  Transmission Date: 20251020
  Serious: Yes (Other)
  Sender: ABBVIE
  Company Number: EU-ABBVIE-6362342

PATIENT
  Age: 62 Year
  Sex: Female

DRUGS (10)
  1. GLECAPREVIR\PIBRENTASVIR [Suspect]
     Active Substance: GLECAPREVIR\PIBRENTASVIR
     Indication: Hepatitis C
     Route: 048
  2. FUROSEMIDE [Concomitant]
     Active Substance: FUROSEMIDE
     Indication: Product used for unknown indication
  3. LACTULOSE [Concomitant]
     Active Substance: LACTULOSE
     Indication: Product used for unknown indication
  4. Ferrum [Concomitant]
     Indication: Product used for unknown indication
  5. LACIDIPINE [Concomitant]
     Active Substance: LACIDIPINE
     Indication: Product used for unknown indication
  6. ASPARTAME [Concomitant]
     Active Substance: ASPARTAME
     Indication: Product used for unknown indication
  7. RAMIPRIL [Concomitant]
     Active Substance: RAMIPRIL
     Indication: Product used for unknown indication
  8. POTASSIUM [Concomitant]
     Active Substance: POTASSIUM
     Indication: Product used for unknown indication
  9. TOUJEO [Concomitant]
     Active Substance: INSULIN GLARGINE
     Indication: Product used for unknown indication
  10. EMPAGLIFLOZIN [Concomitant]
     Active Substance: EMPAGLIFLOZIN
     Indication: Product used for unknown indication

REACTIONS (9)
  - Lymphoma [Recovering/Resolving]
  - Renal disorder [Recovering/Resolving]
  - Hepatomegaly [Recovering/Resolving]
  - Hepatic lesion [Recovering/Resolving]
  - Lymphadenopathy [Recovering/Resolving]
  - Angiomyolipoma [Recovering/Resolving]
  - Hepatic steatosis [Recovering/Resolving]
  - Haemangioma [Recovering/Resolving]
  - Rales [Recovering/Resolving]
